FAERS Safety Report 7771640-7 (Version None)
Quarter: 2011Q3

REPORT INFORMATION
  Report Type: 
  Country: None (occurrence: None)
  Receive Date: 20110922
  Receipt Date: 20100915
  Transmission Date: 20111222
  Serious: No
  Sender: FDA-Public Use
  Company Number: US-ASTRAZENECA-2007UW05687

PATIENT
  Age: 58 Year
  Sex: Female
  Weight: 88.5 kg

DRUGS (7)
  1. EFFEXOR XR [Concomitant]
     Dates: start: 20010504
  2. CLONAZEPAM [Concomitant]
     Dates: start: 20030101
  3. SEROQUEL [Suspect]
     Indication: DEPRESSION
     Dosage: 100-300MG DAILY
     Route: 048
     Dates: start: 20021116, end: 20051128
  4. SEROQUEL [Suspect]
     Route: 048
     Dates: start: 20021116
  5. EFFEXOR XR [Concomitant]
     Dates: start: 20030101
  6. CLONAZEPAM [Concomitant]
     Dates: start: 20020404
  7. WELLBUTRIN [Concomitant]

REACTIONS (7)
  - FALL [None]
  - OBESITY [None]
  - BLOOD TRIGLYCERIDES INCREASED [None]
  - TYPE 2 DIABETES MELLITUS [None]
  - DIABETES MELLITUS [None]
  - HYPERLIPIDAEMIA [None]
  - BLOOD CHOLESTEROL INCREASED [None]
